FAERS Safety Report 13954441 (Version 2)
Quarter: 2017Q3

REPORT INFORMATION
  Report Type: Report from Study
  Country: JP (occurrence: JP)
  Receive Date: 20170911
  Receipt Date: 20170914
  Transmission Date: 20171128
  Serious: Yes (Hospitalization)
  Sender: FDA-Public Use
  Company Number: JP-EISAI MEDICAL RESEARCH-EC-2017-031001

PATIENT
  Age: 58 Year
  Sex: Female
  Weight: 51 kg

DRUGS (19)
  1. LENVATINIB [Suspect]
     Active Substance: LENVATINIB
     Route: 048
     Dates: start: 20170726, end: 20170729
  2. TRIAZOLAM. [Concomitant]
     Active Substance: TRIAZOLAM
  3. SODIUM PICOSULFATE [Concomitant]
     Active Substance: SODIUM PICOSULFATE
  4. TELMISARTAN. [Concomitant]
     Active Substance: TELMISARTAN
  5. SPIRIVA [Concomitant]
     Active Substance: TIOTROPIUM BROMIDE MONOHYDRATE
  6. LENVATINIB [Suspect]
     Active Substance: LENVATINIB
     Route: 048
     Dates: start: 20170801, end: 20170807
  7. OPSO [Concomitant]
     Active Substance: MORPHINE HYDROCHLORIDE
  8. LENVATINIB [Suspect]
     Active Substance: LENVATINIB
     Route: 048
     Dates: start: 20170704, end: 20170719
  9. FAMOTIDINE. [Concomitant]
     Active Substance: FAMOTIDINE
  10. AZUNOL GARGLE LIQUID [Concomitant]
  11. KENALOG [Concomitant]
     Active Substance: TRIAMCINOLONE ACETONIDE
  12. ADALAT [Concomitant]
     Active Substance: NIFEDIPINE
  13. MAGMITT [Concomitant]
     Active Substance: MAGNESIUM OXIDE
  14. LENVATINIB [Suspect]
     Active Substance: LENVATINIB
     Route: 048
     Dates: start: 20170816, end: 20170904
  15. COCARL [Concomitant]
     Active Substance: ACETAMINOPHEN
  16. ADOAIR [Concomitant]
     Active Substance: FLUTICASONE PROPIONATE\SALMETEROL XINAFOATE
  17. LENVATINIB [Suspect]
     Active Substance: LENVATINIB
     Indication: MALIGNANT NEOPLASM OF THYMUS
     Route: 048
     Dates: start: 20170613, end: 20170627
  18. DICLOFENAC SODIUM. [Concomitant]
     Active Substance: DICLOFENAC SODIUM
  19. OXYCODONE [Concomitant]
     Active Substance: OXYCODONE

REACTIONS (1)
  - Electrocardiogram abnormal [Recovered/Resolved]

NARRATIVE: CASE EVENT DATE: 20170905
